FAERS Safety Report 24463147 (Version 2)
Quarter: 2024Q4

REPORT INFORMATION
  Report Type: Spontaneous
  Country: US (occurrence: US)
  Receive Date: 20241018
  Receipt Date: 20241029
  Transmission Date: 20250114
  Serious: Yes (Other)
  Sender: BAYER HEALTHCARE LLC
  Company Number: US-BAYER-2024A146187

PATIENT
  Age: 66 Year
  Sex: Male

DRUGS (3)
  1. ASTEPRO [Suspect]
     Active Substance: AZELASTINE HYDROCHLORIDE
     Indication: Sinus disorder
     Dosage: UNK,I ONLY USE HALF OF THE POP
     Dates: start: 2024, end: 20241011
  2. CLARITIN-D NOS [Suspect]
     Active Substance: LORATADINE\PSEUDOEPHEDRINE SULFATE
     Indication: Sinus disorder
  3. ALLEGRA [Concomitant]
     Active Substance: FEXOFENADINE HYDROCHLORIDE

REACTIONS (7)
  - Urinary retention [Recovered/Resolved]
  - Urine flow decreased [Recovered/Resolved]
  - Intentional product misuse [None]
  - Product use in unapproved indication [None]
  - Fatigue [None]
  - Drug intolerance [None]
  - Drug ineffective [None]

NARRATIVE: CASE EVENT DATE: 20240101
